FAERS Safety Report 17276918 (Version 1)
Quarter: 2020Q1

REPORT INFORMATION
  Report Type: Spontaneous
  Country: FR (occurrence: FR)
  Receive Date: 20200116
  Receipt Date: 20200116
  Transmission Date: 20200409
  Serious: Yes (Hospitalization)
  Sender: FDA-Public Use
  Company Number: FR-BAYER-2020-007802

PATIENT
  Age: 21 Year
  Sex: Male

DRUGS (1)
  1. STIVARGA [Suspect]
     Active Substance: REGORAFENIB
     Indication: EWING^S SARCOMA
     Dosage: 160 MG, QD
     Route: 048
     Dates: start: 20191201, end: 20191215

REACTIONS (8)
  - Mucosal inflammation [Recovering/Resolving]
  - Hyperbilirubinaemia [Recovered/Resolved]
  - Pharyngeal enanthema [Recovering/Resolving]
  - Anaemia [Not Recovered/Not Resolved]
  - Lymphopenia [Not Recovered/Not Resolved]
  - Rash maculo-papular [Recovering/Resolving]
  - Thrombocytopenia [Recovering/Resolving]
  - Pyrexia [Recovered/Resolved]

NARRATIVE: CASE EVENT DATE: 20191214
